FAERS Safety Report 22331165 (Version 1)
Quarter: 2023Q2

REPORT INFORMATION
  Report Type: Other
  Country: CA (occurrence: CA)
  Receive Date: 20230517
  Receipt Date: 20230517
  Transmission Date: 20230721
  Serious: Yes (Death, Life-Threatening, Hospitalization, Other)
  Sender: FDA-Public Use
  Company Number: CA-CELLTRION INC.-2023CA010124

PATIENT

DRUGS (17)
  1. RITUXIMAB [Suspect]
     Active Substance: RITUXIMAB
     Indication: Immunosuppressant drug therapy
     Dosage: 1000.0 MILLIGRAM, TOTAL
  2. MYCOPHENOLATE MOFETIL [Suspect]
     Active Substance: MYCOPHENOLATE MOFETIL
     Indication: Immunosuppressant drug therapy
     Dosage: 1.0 GRAM, EVERY 12 HOURS
     Route: 048
  3. MYCOPHENOLATE MOFETIL [Suspect]
     Active Substance: MYCOPHENOLATE MOFETIL
     Indication: Immunoglobulin G4 related disease
  4. MYCOPHENOLATE MOFETIL [Suspect]
     Active Substance: MYCOPHENOLATE MOFETIL
     Indication: Immunosuppressant drug therapy
     Dosage: 1.0 GRAM
     Route: 048
  5. MYCOPHENOLATE MOFETIL [Suspect]
     Active Substance: MYCOPHENOLATE MOFETIL
     Indication: Immunoglobulin G4 related disease
  6. PREDNISONE [Suspect]
     Active Substance: PREDNISONE
     Indication: Immunosuppressant drug therapy
     Dosage: 40.0 MILLIGRAM
     Route: 048
  7. PREDNISONE [Suspect]
     Active Substance: PREDNISONE
     Indication: Immunoglobulin G4 related disease
     Dosage: 40.0 MILLIGRAM EVERY 1 DAY
     Route: 048
  8. PREDNISONE [Suspect]
     Active Substance: PREDNISONE
     Dosage: 20.0 MILLIGRAM
     Route: 048
  9. PREDNISONE [Suspect]
     Active Substance: PREDNISONE
     Dosage: 20.0 MILLIGRAM EVERY 1 DAY
     Route: 048
  10. PREDNISONE [Suspect]
     Active Substance: PREDNISONE
     Dosage: 50.0 MILLIGRAM
     Route: 048
  11. PREDNISONE [Suspect]
     Active Substance: PREDNISONE
     Dosage: 50.0 MILLIGRAM EVERY 1 DAY
     Route: 048
  12. PREDNISONE [Suspect]
     Active Substance: PREDNISONE
     Dosage: 30.0 MILLIGRAM
     Route: 048
  13. PREDNISONE [Suspect]
     Active Substance: PREDNISONE
     Dosage: 30.0 MILLIGRAM EVERY 1 DAY
     Route: 048
  14. PREDNISONE [Suspect]
     Active Substance: PREDNISONE
     Dosage: 45.0 MILLIGRAM EVERY 1 DAY
     Route: 048
  15. PREDNISONE [Suspect]
     Active Substance: PREDNISONE
     Dosage: 45.0 MILLIGRAM
     Route: 048
  16. PREDNISONE [Suspect]
     Active Substance: PREDNISONE
     Indication: Immunosuppressant drug therapy
     Dosage: 50.0 MILLIGRAM, EVERY 1 DAY
     Route: 048
  17. PREDNISONE [Suspect]
     Active Substance: PREDNISONE
     Indication: Immunoglobulin G4 related disease

REACTIONS (5)
  - Disseminated strongyloidiasis [Fatal]
  - Pneumonia aspiration [Fatal]
  - Septic shock [Fatal]
  - Strongyloidiasis [Fatal]
  - Intentional product use issue [Unknown]
